FAERS Safety Report 7421324-X (Version None)
Quarter: 2011Q2

REPORT INFORMATION
  Report Type: 
  Country: None (occurrence: None)
  Receive Date: 20110408
  Receipt Date: 20110328
  Transmission Date: 20111010
  Serious: Yes (Other)
  Sender: FDA-Public Use
  Company Number: TRP_07622_2011

PATIENT
  Age: 51 Year
  Sex: Female

DRUGS (7)
  1. ALCOHOL [Suspect]
     Indication: PRODUCT USED FOR UNKNOWN INDICATION
     Dosage: (SIGNIFICANT AMOUNT)
  2. BUSPIRONE HCL [Concomitant]
  3. PEGINTERFERON ALFA-2B [Suspect]
     Indication: HEPATITIS C
     Dosage: (80 ?G 1X/WEEK)
  4. BUPROPION [Suspect]
     Indication: ANTIDEPRESSANT THERAPY
     Dosage: (UNCONFIRMED OVERDOSE), (DF)
  5. BUPROPION [Suspect]
     Indication: ANTIDEPRESSANT THERAPY
     Dosage: (UNCONFIRMED OVERDOSE), (DF)
     Dates: start: 19890101
  6. PAROXETINE HCL [Concomitant]
  7. RIBAVIRIN [Suspect]
     Indication: HEPATITIS C
     Dosage: (800 MG, DAILY)

REACTIONS (4)
  - OVERDOSE [None]
  - CONVULSIVE THRESHOLD LOWERED [None]
  - GRAND MAL CONVULSION [None]
  - ALCOHOL USE [None]
